FAERS Safety Report 16943320 (Version 2)
Quarter: 2020Q3

REPORT INFORMATION
  Report Type: Report from Study
  Country: DE (occurrence: DE)
  Receive Date: 20191022
  Receipt Date: 20200609
  Transmission Date: 20201105
  Serious: No
  Sender: FDA-Public Use
  Company Number: NVSC2019DE010612

PATIENT

DRUGS (2)
  1. NAPORAFENIB. [Suspect]
     Active Substance: NAPORAFENIB
     Indication: MALIGNANT MELANOMA
     Dosage: UNK
     Route: 048
  2. RIBOCICLIB. [Suspect]
     Active Substance: RIBOCICLIB
     Indication: MALIGNANT MELANOMA
     Dosage: UNK
     Route: 065

REACTIONS (1)
  - Rash [Unknown]
